FAERS Safety Report 18651593 (Version 2)
Quarter: 2021Q1

REPORT INFORMATION
  Report Type: Report from Study
  Country: US (occurrence: US)
  Receive Date: 20201222
  Receipt Date: 20210313
  Transmission Date: 20210419
  Serious: Yes (Death, Life-Threatening, Other)
  Sender: FDA-Public Use
  Company Number: NVSC2020US291427

PATIENT
  Age: 18 Year
  Sex: Female

DRUGS (3)
  1. CYCLOPHOSPHAMIDE. [Concomitant]
     Active Substance: CYCLOPHOSPHAMIDE
     Indication: CHEMOTHERAPY
     Dosage: UNK
     Route: 065
  2. FLUDARABINE [Concomitant]
     Active Substance: FLUDARABINE PHOSPHATE
     Indication: CHEMOTHERAPY
     Dosage: UNK
     Route: 065
  3. KYMRIAH [Suspect]
     Active Substance: TISAGENLECLEUCEL
     Indication: B-CELL TYPE ACUTE LEUKAEMIA
     Dosage: UNK, ONCE/SINGLE
     Route: 042
     Dates: start: 20191028

REACTIONS (19)
  - Cytokine release syndrome [Recovered/Resolved]
  - Pyrexia [Unknown]
  - Hypotension [Unknown]
  - Hypoxia [Unknown]
  - Thrombocytopenia [Unknown]
  - Hallucination [Unknown]
  - Acute lymphocytic leukaemia [Unknown]
  - Haemoglobin decreased [Unknown]
  - Death [Fatal]
  - Hypogammaglobulinaemia [Unknown]
  - Cellulitis [Unknown]
  - Depressed level of consciousness [Unknown]
  - Lymphocyte count decreased [Unknown]
  - Recurrent cancer [Unknown]
  - Cytopenia [Unknown]
  - Haematocrit decreased [Unknown]
  - White blood cell count decreased [Unknown]
  - Neurotoxicity [Recovered/Resolved]
  - Neutrophil count decreased [Recovered/Resolved]
